FAERS Safety Report 6672077-4 (Version None)
Quarter: 2010Q2

REPORT INFORMATION
  Report Type: 
  Country: None (occurrence: None)
  Receive Date: 20100407
  Receipt Date: 20100407
  Transmission Date: 20101027
  Serious: Yes (Hospitalization)
  Sender: FDA-Public Use
  Company Number: None

PATIENT
  Sex: Male

DRUGS (2)
  1. ENBREL [Suspect]
     Indication: PSORIASIS
     Dosage: 50 MG QWK SC
     Route: 058
     Dates: start: 20081106
  2. ENBREL [Suspect]
     Indication: RHEUMATOID ARTHRITIS
     Dosage: 50 MG QWK SC
     Route: 058
     Dates: start: 20081106

REACTIONS (3)
  - GOUT [None]
  - PANCREATITIS [None]
  - WEIGHT DECREASED [None]
